FAERS Safety Report 5156755-4 (Version None)
Quarter: 2006Q4

REPORT INFORMATION
  Report Type: 
  Country: None (occurrence: None)
  Receive Date: 20061122
  Receipt Date: 20061109
  Transmission Date: 20070319
  Serious: Yes (Other)
  Sender: FDA-Public Use
  Company Number: JP-MERCK-0611USA03721

PATIENT

DRUGS (1)
  1. PRIMAXIN [Suspect]
     Route: 041

REACTIONS (1)
  - EPILEPSY [None]
